FAERS Safety Report 11265068 (Version 1)
Quarter: 2015Q3

REPORT INFORMATION
  Report Type: Spontaneous
  Country: FI (occurrence: FI)
  Receive Date: 20150713
  Receipt Date: 20150713
  Transmission Date: 20151125
  Serious: Yes (Disabling)
  Sender: FDA-Public Use
  Company Number: PHHY2015FI082758

PATIENT
  Age: 66 Year
  Sex: Male

DRUGS (6)
  1. PREDNISON [Concomitant]
     Active Substance: PREDNISONE
     Indication: PROSTATE CANCER
     Route: 048
     Dates: start: 201410
  2. ZYTIGA [Concomitant]
     Active Substance: ABIRATERONE ACETATE
     Indication: PROSTATE CANCER
     Route: 048
     Dates: start: 201410
  3. FIRMAGON//DEGARELIX [Concomitant]
     Indication: PROSTATE CANCER
     Route: 065
  4. ZOMETA [Suspect]
     Active Substance: ZOLEDRONIC ACID
     Indication: SUPPORTIVE CARE
     Route: 065
     Dates: start: 201405, end: 201409
  5. XGEVA [Suspect]
     Active Substance: DENOSUMAB
     Dosage: 120 MG, QMO
     Route: 058
     Dates: start: 201410, end: 201411
  6. XGEVA [Suspect]
     Active Substance: DENOSUMAB
     Indication: PROSTATE CANCER
     Dosage: 120 MG, QMO
     Route: 058
     Dates: start: 201402, end: 201405

REACTIONS (1)
  - Osteonecrosis of jaw [Recovered/Resolved with Sequelae]

NARRATIVE: CASE EVENT DATE: 20141106
